FAERS Safety Report 13386864 (Version 1)
Quarter: 2017Q1

REPORT INFORMATION
  Report Type: Report from Study
  Country: CZ (occurrence: CZ)
  Receive Date: 20170330
  Receipt Date: 20170330
  Transmission Date: 20170429
  Serious: Yes (Hospitalization)
  Sender: FDA-Public Use
  Company Number: CZ-UCBSA-2015014068

PATIENT
  Age: 4 Year
  Sex: Male
  Weight: 20 kg

DRUGS (1)
  1. BRIVARACETAM PEP [Suspect]
     Active Substance: BRIVARACETAM
     Indication: EPILEPSY
     Dosage: 9 MG, 2X/DAY (BID)
     Route: 048
     Dates: start: 20150411, end: 20150417

REACTIONS (1)
  - Seizure [Recovered/Resolved]

NARRATIVE: CASE EVENT DATE: 20150418
